FAERS Safety Report 25067161 (Version 1)
Quarter: 2025Q1

REPORT INFORMATION
  Report Type: Report from Study
  Country: US (occurrence: US)
  Receive Date: 20250312
  Receipt Date: 20250312
  Transmission Date: 20250409
  Serious: No
  Sender: SUNOVION
  Company Number: US-SUMITOMO PHARMA SWITZERLAND GMBH-2025SPA001931

PATIENT

DRUGS (7)
  1. ORGOVYX [Suspect]
     Active Substance: RELUGOLIX
     Indication: Prostate cancer
     Dosage: 360 MG, SINGLE
     Route: 048
  2. ORGOVYX [Suspect]
     Active Substance: RELUGOLIX
     Dosage: 120 MG, QD
     Route: 048
  3. NUBEQA [Suspect]
     Active Substance: DAROLUTAMIDE
     Route: 065
  4. EZETIMIBE [Concomitant]
     Active Substance: EZETIMIBE
     Route: 065
  5. LANTUS [Concomitant]
     Active Substance: INSULIN GLARGINE
     Route: 065
  6. NOVOLOG [Concomitant]
     Active Substance: INSULIN ASPART
     Route: 065
  7. OLMESARTAN [Concomitant]
     Active Substance: OLMESARTAN
     Route: 065

REACTIONS (2)
  - Hot flush [Unknown]
  - Myalgia [Unknown]
